FAERS Safety Report 6427792-4 (Version None)
Quarter: 2009Q4

REPORT INFORMATION
  Report Type: 
  Country: None (occurrence: None)
  Receive Date: 20091104
  Receipt Date: 20091104
  Transmission Date: 20100525
  Serious: No
  Sender: FDA-Public Use
  Company Number: None

PATIENT
  Age: 55 Year
  Sex: Female
  Weight: 100.6985 kg

DRUGS (1)
  1. COZAAR [Suspect]
     Indication: HYPERTENSION
     Dosage: 150 MG ONCE DAILY PO LATE 2008
     Route: 048
     Dates: start: 20080101, end: 20090301

REACTIONS (1)
  - RENAL FAILURE ACUTE [None]
